FAERS Safety Report 22931451 (Version 3)
Quarter: 2023Q4

REPORT INFORMATION
  Report Type: Report from Study
  Country: GB (occurrence: GB)
  Receive Date: 20230911
  Receipt Date: 20231009
  Transmission Date: 20240109
  Serious: Yes (Death, Hospitalization, Disabling, Other)
  Sender: FDA-Public Use
  Company Number: GB-JNJFOC-20230906477

PATIENT
  Age: 49 Year
  Sex: Male
  Weight: 91.1 kg

DRUGS (7)
  1. TALQUETAMAB [Suspect]
     Active Substance: TALQUETAMAB
     Indication: Plasma cell myeloma
     Dosage: CYCLE 1- 19-JUL-2023, 25-JUL-2023, 28-JUL-2023
     Route: 065
     Dates: start: 20230717
  2. TALQUETAMAB [Suspect]
     Active Substance: TALQUETAMAB
     Dosage: CYCLE 2, DAY 1
     Route: 065
     Dates: start: 20230814
  3. ACYCLOVIR [Concomitant]
     Active Substance: ACYCLOVIR
     Indication: Prophylaxis
     Dates: start: 20230815
  4. CALCIUM CARBONATE\CHOLECALCIFEROL [Concomitant]
     Active Substance: CALCIUM CARBONATE\CHOLECALCIFEROL
     Indication: Prophylaxis
     Dates: start: 20230815
  5. CLARITHROMYCIN [Concomitant]
     Active Substance: CLARITHROMYCIN
     Indication: Lower respiratory tract infection
     Dates: start: 20230828
  6. PIPERACILLIN SODIUM\TAZOBACTAM SODIUM [Concomitant]
     Active Substance: PIPERACILLIN SODIUM\TAZOBACTAM SODIUM
     Indication: Lower respiratory tract infection
     Dates: start: 20230827
  7. METHYLPREDNISOLONE [Concomitant]
     Active Substance: METHYLPREDNISOLONE
     Indication: Neurological symptom
     Dates: start: 20230902

REACTIONS (4)
  - Pneumonia [Fatal]
  - Brain stem syndrome [Unknown]
  - Hypoaesthesia oral [Unknown]
  - Dyspnoea [Unknown]

NARRATIVE: CASE EVENT DATE: 20230815
